FAERS Safety Report 25602656 (Version 1)
Quarter: 2025Q3

REPORT INFORMATION
  Report Type: Spontaneous
  Country: US (occurrence: US)
  Receive Date: 20250724
  Receipt Date: 20250724
  Transmission Date: 20251020
  Serious: Yes (Other)
  Sender: SANOFI AVENTIS
  Company Number: US-SA-2025SA209567

PATIENT
  Age: 68 Year
  Sex: Female
  Weight: 112.93 kg

DRUGS (1)
  1. DUPIXENT [Suspect]
     Active Substance: DUPILUMAB
     Indication: Asthma
     Dosage: 200 MG, QOW
     Route: 058
     Dates: start: 20241218, end: 20250708

REACTIONS (2)
  - Breast cancer stage II [Unknown]
  - Chest pain [Unknown]

NARRATIVE: CASE EVENT DATE: 20250101
